FAERS Safety Report 5808349-2 (Version None)
Quarter: 2008Q3

REPORT INFORMATION
  Report Type: 
  Country: None (occurrence: None)
  Receive Date: 20080714
  Receipt Date: 20080630
  Transmission Date: 20090109
  Serious: Yes (Other)
  Sender: FDA-Public Use
  Company Number: PHHY2008FR12868

PATIENT
  Sex: Female

DRUGS (4)
  1. TEGRETOL [Suspect]
     Indication: EPILEPSY
     Dosage: 400 MG, BID
     Route: 048
     Dates: start: 19980101
  2. SABRIL [Suspect]
     Indication: EPILEPSY
     Dosage: 500 MG, TID
     Route: 048
     Dates: start: 19980101
  3. NEURONTIN [Suspect]
     Indication: EPILEPSY
     Dosage: 800 MG, TID
     Route: 048
     Dates: start: 19980101
  4. URBANYL [Suspect]
     Indication: EPILEPSY
     Dosage: 10 MG, BID
     Route: 048
     Dates: start: 19980101

REACTIONS (2)
  - ABORTION SPONTANEOUS [None]
  - DRUG EXPOSURE DURING PREGNANCY [None]
